FAERS Safety Report 8653840 (Version 6)
Quarter: 2015Q3

REPORT INFORMATION
  Report Type: Report from Study
  Country: FR (occurrence: FR)
  Receive Date: 20120709
  Receipt Date: 20150806
  Transmission Date: 20151125
  Serious: Yes (Hospitalization, Other)
  Sender: FDA-Public Use
  Company Number: PHHY2012FR057190

PATIENT
  Age: 3 Year
  Sex: Female
  Weight: 13.5 kg

DRUGS (1)
  1. ILARIS [Suspect]
     Active Substance: CANAKINUMAB
     Indication: HYPER IGD SYNDROME
     Dosage: 4 MG/KG (TOTAL OF 54 MG) EVERY 6 WEEKS
     Route: 058
     Dates: start: 20120113

REACTIONS (10)
  - C-reactive protein increased [Unknown]
  - Tooth abscess [Unknown]
  - Condition aggravated [Unknown]
  - Mouth ulceration [Unknown]
  - Pyrexia [Recovered/Resolved]
  - White blood cell count increased [Unknown]
  - Abdominal pain [Unknown]
  - Viral infection [Unknown]
  - Hyper IgD syndrome [Unknown]
  - Tonsillitis [Recovered/Resolved]

NARRATIVE: CASE EVENT DATE: 20120529
